FAERS Safety Report 11613201 (Version 1)
Quarter: 2015Q4

REPORT INFORMATION
  Report Type: Spontaneous
  Country: US (occurrence: US)
  Receive Date: 20151008
  Receipt Date: 20151008
  Transmission Date: 20160304
  Serious: No
  Sender: FDA-Public Use
  Company Number: US-JNJFOC-20150904534

PATIENT
  Age: 50 Year
  Sex: Female
  Weight: 86.64 kg

DRUGS (1)
  1. SIMPONI [Suspect]
     Active Substance: GOLIMUMAB
     Indication: ARTHRITIS
     Route: 058
     Dates: start: 201506

REACTIONS (4)
  - Device malfunction [Unknown]
  - Incorrect product storage [Unknown]
  - Nervousness [Not Recovered/Not Resolved]
  - Drug dose omission [Unknown]

NARRATIVE: CASE EVENT DATE: 201506
